FAERS Safety Report 9490333 (Version 1)
Quarter: 2013Q3

REPORT INFORMATION
  Report Type: Spontaneous
  Country: US (occurrence: US)
  Receive Date: 20130830
  Receipt Date: 20130830
  Transmission Date: 20140515
  Serious: No
  Sender: FDA-Public Use
  Company Number: US-BIOGENIDEC-2013BI081671

PATIENT
  Age: 49 Year
  Sex: Female

DRUGS (7)
  1. TYSABRI [Suspect]
     Indication: MULTIPLE SCLEROSIS
     Route: 042
     Dates: start: 20111214
  2. VALIUM [Concomitant]
     Indication: NEURALGIA
     Dates: end: 2013
  3. AMANTADINE [Concomitant]
     Indication: MULTIPLE SCLEROSIS
     Dates: start: 201306
  4. LATUDA [Concomitant]
     Indication: NEURALGIA
     Dates: start: 201306
  5. CELEBREX [Concomitant]
     Indication: PAIN
     Dates: start: 201306
  6. ASPIRIN [Concomitant]
     Indication: PAIN
     Dates: start: 201306
  7. COPAXONE [Concomitant]
     Indication: MULTIPLE SCLEROSIS
     Dates: end: 2011

REACTIONS (7)
  - Muscle tightness [Recovered/Resolved]
  - Aphasia [Recovered/Resolved]
  - Hemiparesis [Not Recovered/Not Resolved]
  - Depression [Recovered/Resolved]
  - Pain in extremity [Recovered/Resolved]
  - Blindness unilateral [Recovered/Resolved]
  - Chest discomfort [Recovered/Resolved]
